FAERS Safety Report 11723378 (Version 1)
Quarter: 2015Q4

REPORT INFORMATION
  Report Type: Spontaneous
  Country: US (occurrence: None)
  Receive Date: 20151110
  Receipt Date: 20151110
  Transmission Date: 20160304
  Serious: Yes (Disabling)
  Sender: FDA-Public Use
  Company Number: None

PATIENT
  Age: 67 Year
  Sex: Female
  Weight: 97.52 kg

DRUGS (21)
  1. AUVI-Q [Suspect]
     Active Substance: EPINEPHRINE
  2. ZINC [Concomitant]
     Active Substance: ZINC\ZINC CHLORIDE
  3. COPPER [Concomitant]
     Active Substance: COPPER
  4. MYRBETRIQ [Concomitant]
     Active Substance: MIRABEGRON
  5. ENABLEX [Concomitant]
     Active Substance: DARIFENACIN\DARIFENACIN HYDROBROMIDE
  6. MULTIVITAMIN [Concomitant]
     Active Substance: VITAMINS
  7. VITAMIN D [Concomitant]
     Active Substance: CHOLECALCIFEROL
  8. CALCIUM [Concomitant]
     Active Substance: CALCIUM
  9. MAGNESIUM [Concomitant]
     Active Substance: MAGNESIUM
  10. BUPROPION. [Concomitant]
     Active Substance: BUPROPION
  11. PHENTERINE [Concomitant]
  12. VITAMIN D [Concomitant]
     Active Substance: CHOLECALCIFEROL
  13. SELENIUM [Concomitant]
     Active Substance: SELENIUM
  14. LOXIN [Concomitant]
  15. NALTREXONE [Concomitant]
     Active Substance: NALTREXONE
  16. OSTEO-FLEX MULTIVITAMIN A [Concomitant]
  17. CHROMIUM [Concomitant]
     Active Substance: CHROMIC CHLORIDE\CHROMIUM
  18. GLUCOSAMINE [Concomitant]
     Active Substance: GLUCOSAMINE
  19. CONTRAVE [Concomitant]
     Active Substance: BUPROPION HYDROCHLORIDE\NALTREXONE HYDROCHLORIDE
  20. IRON [Concomitant]
     Active Substance: IRON
  21. VITAMIN C [Concomitant]
     Active Substance: ASCORBIC ACID

REACTIONS (7)
  - Dyspnoea [None]
  - Dysstasia [None]
  - Immobile [None]
  - Product packaging issue [None]
  - Heart rate increased [None]
  - Pulmonary hypertension [None]
  - Drug administration error [None]

NARRATIVE: CASE EVENT DATE: 20150601
